FAERS Safety Report 7391169-8 (Version None)
Quarter: 2011Q2

REPORT INFORMATION
  Report Type: 
  Country: None (occurrence: None)
  Receive Date: 20110404
  Receipt Date: 20100507
  Transmission Date: 20111010
  Serious: Yes (Other)
  Sender: FDA-Public Use
  Company Number: US-PFIZER INC-2010032473

PATIENT
  Sex: Female
  Weight: 54.422 kg

DRUGS (2)
  1. ZOLOFT [Suspect]
     Indication: DEPRESSION
     Dosage: 50 MG DAILY
     Route: 048
  2. PREVACID [Suspect]
     Dosage: UNK
     Route: 048
     Dates: start: 20100201

REACTIONS (2)
  - DRUG INEFFECTIVE [None]
  - RESPIRATORY TRACT INFECTION [None]
